FAERS Safety Report 4972602-5 (Version None)
Quarter: 2006Q1

REPORT INFORMATION
  Report Type: 
  Country: None (occurrence: None)
  Receive Date: 20060216
  Receipt Date: 20051207
  Transmission Date: 20060701
  Serious: No
  Sender: FDA-Public Use
  Company Number: TPA2005A01589

PATIENT
  Age: 65 Year
  Sex: Female

DRUGS (1)
  1. ROZEREM [Suspect]
     Dosage: SEE IMAGE
     Route: 048
     Dates: start: 20051111

REACTIONS (2)
  - DRUG INEFFECTIVE [None]
  - OVERDOSE [None]
